FAERS Safety Report 15490996 (Version 1)
Quarter: 2018Q4

REPORT INFORMATION
  Report Type: Spontaneous
  Country: US (occurrence: US)
  Receive Date: 20181012
  Receipt Date: 20181012
  Transmission Date: 20190205
  Serious: No
  Sender: FDA-Public Use
  Company Number: US-BION-007008

PATIENT

DRUGS (1)
  1. PROGESTERONE BIONPHARMA [Suspect]
     Active Substance: PROGESTERONE
     Indication: HOT FLUSH
     Dosage: STRENGTH:100 MG??TOOK 400 MG INSTEAD OF USUAL 300 MG ON 10-JAN-2018

REACTIONS (4)
  - Product substitution issue [Unknown]
  - Feeling cold [Unknown]
  - Drug ineffective for unapproved indication [Not Recovered/Not Resolved]
  - Feeling abnormal [Unknown]
